FAERS Safety Report 24332328 (Version 1)
Quarter: 2024Q3

REPORT INFORMATION
  Report Type: Spontaneous
  Country: CN (occurrence: CN)
  Receive Date: 20240918
  Receipt Date: 20240918
  Transmission Date: 20241016
  Serious: Yes (Hospitalization, Other)
  Sender: SANOFI AVENTIS
  Company Number: CN-SA-2024SA265512

PATIENT
  Age: 88 Year
  Sex: Female
  Weight: 42.5 kg

DRUGS (2)
  1. CLOPIDOGREL BISULFATE [Suspect]
     Active Substance: CLOPIDOGREL BISULFATE
     Indication: Atrial fibrillation
     Dosage: 1 DF, QD
     Route: 048
     Dates: start: 20240509, end: 20240908
  2. RIVAROXABAN [Suspect]
     Active Substance: RIVAROXABAN
     Indication: Atrial fibrillation
     Dosage: 1 DF, QD
     Route: 048
     Dates: start: 20240509, end: 20240908

REACTIONS (8)
  - Cardiac failure [Unknown]
  - Syncope [Unknown]
  - Lower gastrointestinal haemorrhage [Not Recovered/Not Resolved]
  - Haematochezia [Unknown]
  - Colitis ischaemic [Unknown]
  - Oedema [Unknown]
  - Haemorrhage [Unknown]
  - Abdominal pain [Unknown]

NARRATIVE: CASE EVENT DATE: 20240907
